FAERS Safety Report 23551409 (Version 1)
Quarter: 2024Q1

REPORT INFORMATION
  Report Type: Spontaneous
  Country: NL (occurrence: NL)
  Receive Date: 20240222
  Receipt Date: 20240222
  Transmission Date: 20240409
  Serious: Yes (Hospitalization)
  Sender: FDA-Public Use
  Company Number: NL-ROCHE-3508121

PATIENT
  Age: 57 Year
  Sex: Female

DRUGS (3)
  1. CAPECITABINE [Suspect]
     Active Substance: CAPECITABINE
     Indication: Colorectal cancer metastatic
     Route: 048
     Dates: start: 20230904, end: 20231010
  2. BEVACIZUMAB [Suspect]
     Active Substance: BEVACIZUMAB
     Indication: Colorectal cancer metastatic
     Dates: start: 20230904, end: 20230920
  3. OXALIPLATIN [Suspect]
     Active Substance: OXALIPLATIN
     Indication: Colorectal cancer metastatic
     Dates: start: 20230904, end: 20230926

REACTIONS (3)
  - Gastrointestinal stoma complication [Recovered/Resolved]
  - Renal impairment [Unknown]
  - Hypophagia [Unknown]

NARRATIVE: CASE EVENT DATE: 20231015
